FAERS Safety Report 18757368 (Version 1)
Quarter: 2021Q1

REPORT INFORMATION
  Report Type: Spontaneous
  Country: GB (occurrence: GB)
  Receive Date: 20210119
  Receipt Date: 20210119
  Transmission Date: 20210419
  Serious: Yes (Other)
  Sender: FDA-Public Use
  Company Number: GB-MYLANLABS-2021M1002504

PATIENT
  Age: 65 Year
  Sex: Female
  Weight: 62 kg

DRUGS (15)
  1. FOLIC ACID. [Concomitant]
     Active Substance: FOLIC ACID
     Dosage: 1 DOSAGE FORM, QD (APART FROM DAY TAKES METHOTREXATE, 1DF)
     Dates: start: 20190123
  2. SERETIDE [Concomitant]
     Active Substance: FLUTICASONE PROPIONATE\SALMETEROL XINAFOATE
     Dosage: 4 DOSAGE FORM, QD (PUFFS, 4DF)
     Dates: start: 20200702
  3. VENTOLIN [Concomitant]
     Active Substance: ALBUTEROL SULFATE
     Dosage: 8 DOSAGE FORMS DAILY; PUFFS. FOUR TIMES A DAY
     Dates: start: 20200702
  4. PROCHLORPERAZINE. [Concomitant]
     Active Substance: PROCHLORPERAZINE
     Dosage: 3 DOSAGE FORMS DAILY; THREE TIMES A DAY
     Dates: start: 20201120, end: 20201127
  5. DILTIAZEM. [Suspect]
     Active Substance: DILTIAZEM
     Indication: ATRIAL FIBRILLATION
     Dosage: 120 MILLIGRAM, QD (120MG)
     Route: 048
     Dates: start: 20201208
  6. AMOXICILLIN. [Concomitant]
     Active Substance: AMOXICILLIN
     Dosage: 3 DOSAGE FORM, QD (3DF)
     Dates: start: 20201117, end: 20201124
  7. ATORVASTATIN [Concomitant]
     Active Substance: ATORVASTATIN
     Dosage: 1 DOSAGE FORM, QD (1DF)
     Dates: start: 20200408
  8. COCODAMOL [Concomitant]
     Active Substance: ACETAMINOPHEN\CODEINE PHOSPHATE
     Dosage: 2 DOSAGE FORMS DAILY; AT NIGHT
     Dates: start: 20200325
  9. LANSOPRAZOLE. [Concomitant]
     Active Substance: LANSOPRAZOLE
     Dosage: 1 DOSAGE FORM, QD (1DF)
     Dates: start: 20191122
  10. METHOTREXATE. [Concomitant]
     Active Substance: METHOTREXATE
     Dosage: 17.5 MILLIGRAM, QW
     Route: 048
     Dates: start: 20200702
  11. PREDNISOLONE. [Concomitant]
     Active Substance: PREDNISOLONE
     Dosage: 4 DOSAGE FORM, QD (4DF)
     Route: 048
     Dates: start: 20201214
  12. APIXABAN [Concomitant]
     Active Substance: APIXABAN
     Dosage: 2 DOSAGE FORM, QD (2DF)
     Dates: start: 20200907
  13. BISOPROLOL [Concomitant]
     Active Substance: BISOPROLOL
     Dosage: 1 DOSAGE FORM, QD (1 DOSAGE FORMS DAILY; IN THE MORNING)
     Dates: start: 20200907, end: 20200930
  14. CETIRIZINE [Concomitant]
     Active Substance: CETIRIZINE HYDROCHLORIDE
     Dosage: 1 DOSAGE FORM, QD (1DF)
     Dates: start: 20181218
  15. LEVOTHYROXINE. [Concomitant]
     Active Substance: LEVOTHYROXINE
     Dosage: 1 DOSAGE FORMS DAILY; IN THE MORNING
     Dates: start: 20200316

REACTIONS (3)
  - Rash [Unknown]
  - Swelling face [Unknown]
  - Hypersensitivity [Unknown]

NARRATIVE: CASE EVENT DATE: 20201214
